FAERS Safety Report 9730784 (Version 5)
Quarter: 2014Q2

REPORT INFORMATION
  Report Type: Spontaneous
  Country: JP (occurrence: JP)
  Receive Date: 20131205
  Receipt Date: 20140424
  Transmission Date: 20141212
  Serious: Yes (Hospitalization)
  Sender: FDA-Public Use
  Company Number: JP-ROCHE-1313907

PATIENT
  Age: 81 Year
  Sex: Female
  Weight: 52 kg

DRUGS (9)
  1. LUCENTIS [Suspect]
     Indication: AGE-RELATED MACULAR DEGENERATION
     Route: 050
     Dates: start: 20131003
  2. LUCENTIS [Suspect]
     Dosage: LAST DOSE RECEIVED IN DEC 2013.
     Route: 050
     Dates: start: 20131114
  3. SENNOSIDE A+B [Concomitant]
  4. GASTER (JAPAN) [Concomitant]
  5. GANATON [Concomitant]
  6. CALBLOCK [Concomitant]
  7. OLMETEC [Concomitant]
  8. PRAVASTATIN [Concomitant]
  9. MYSLEE [Concomitant]

REACTIONS (3)
  - Convulsion [Unknown]
  - Dyskinesia [Recovered/Resolved]
  - Myoclonus [Recovered/Resolved]
